FAERS Safety Report 15808391 (Version 1)
Quarter: 2019Q1

REPORT INFORMATION
  Report Type: Report from Study
  Country: CO (occurrence: CO)
  Receive Date: 20190110
  Receipt Date: 20190110
  Transmission Date: 20190417
  Serious: Yes (Death, Other)
  Sender: FDA-Public Use
  Company Number: CO-TAKEDA-2018TUS035583

PATIENT
  Age: 24 Year
  Sex: Female
  Weight: 35 kg

DRUGS (1)
  1. VEDOLIZUMAB [Suspect]
     Active Substance: VEDOLIZUMAB
     Indication: CROHN^S DISEASE
     Dosage: 300 MG, UNK
     Route: 042
     Dates: start: 20181121, end: 20190103

REACTIONS (5)
  - Blood pressure decreased [Unknown]
  - Crohn^s disease [Unknown]
  - Underweight [Unknown]
  - Intestinal mass [Unknown]
  - Death [Fatal]

NARRATIVE: CASE EVENT DATE: 20181204
